FAERS Safety Report 13242656 (Version 1)
Quarter: 2017Q1

REPORT INFORMATION
  Report Type: Spontaneous
  Country: US (occurrence: US)
  Receive Date: 20170216
  Receipt Date: 20170216
  Transmission Date: 20170428
  Serious: No
  Sender: FDA-Public Use
  Company Number: None

PATIENT
  Age: 52 Year
  Sex: Male

DRUGS (1)
  1. STIVARGA [Suspect]
     Active Substance: REGORAFENIB
     Indication: NEOPLASM MALIGNANT
     Route: 048
     Dates: start: 20161219, end: 20170131

REACTIONS (6)
  - Skin exfoliation [None]
  - Hallucination [None]
  - Mental disorder [None]
  - Candida infection [None]
  - Rash [None]
  - Nausea [None]

NARRATIVE: CASE EVENT DATE: 20161220
